FAERS Safety Report 24139132 (Version 2)
Quarter: 2024Q3

REPORT INFORMATION
  Report Type: Spontaneous
  Country: US (occurrence: US)
  Receive Date: 20240726
  Receipt Date: 20240731
  Transmission Date: 20241017
  Serious: No
  Sender: JOHNSON AND JOHNSON
  Company Number: US-JNJFOC-20240764258

PATIENT
  Age: 63 Year
  Sex: Female

DRUGS (2)
  1. SPRAVATO [Suspect]
     Active Substance: ESKETAMINE
     Indication: Depression
  2. SPRAVATO [Suspect]
     Active Substance: ESKETAMINE
     Indication: Suicidal ideation
     Dosage: ONCE A WEEK FOR FOR 6 WEEKS
     Dates: start: 20240710

REACTIONS (7)
  - Hypoaesthesia [Recovering/Resolving]
  - Tremor [Recovering/Resolving]
  - Jaw disorder [Recovering/Resolving]
  - Derealisation [Recovering/Resolving]
  - Mobility decreased [Recovering/Resolving]
  - Dissociation [Not Recovered/Not Resolved]
  - Therapy interrupted [Unknown]
